FAERS Safety Report 9271065 (Version 2)
Quarter: 2013Q2

REPORT INFORMATION
  Report Type: Spontaneous
  Country: CN (occurrence: CN)
  Receive Date: 20130506
  Receipt Date: 20130517
  Transmission Date: 20140414
  Serious: Yes (Death)
  Sender: FDA-Public Use
  Company Number: CN-JNJFOC-20130500972

PATIENT
  Sex: 0

DRUGS (10)
  1. DOXORUBICIN [Suspect]
     Indication: PLASMA CELL MYELOMA
     Dosage: ON DAYS 4 AND 18
     Route: 042
  2. BORTEZOMIB [Suspect]
     Indication: PLASMA CELL MYELOMA
     Dosage: ON DAYS 1,4, 8, AND 11 OF EACH TREATMENT CYCLE
     Route: 065
  3. BORTEZOMIB [Suspect]
     Indication: PLASMA CELL MYELOMA
     Dosage: DAYS 1, 8, 15, AND 22 OF EACH TREATMENT CYCLE
     Route: 065
  4. DEXAMETHASONE [Suspect]
     Indication: PLASMA CELL MYELOMA
     Dosage: ON DAYS 1-4
     Route: 042
  5. DEXAMETHASONE [Suspect]
     Indication: PLASMA CELL MYELOMA
     Dosage: ON DAYS 1-4
     Route: 042
  6. ADRIAMYCIN [Suspect]
     Indication: PLASMA CELL MYELOMA
     Dosage: ON THE FOURTH DAY OF EACH TREATMENT CYCLE
     Route: 065
  7. CYCLOPHOSPHAMIDE [Suspect]
     Indication: PLASMA CELL MYELOMA
     Dosage: 3.0-5.0 G/M2 ON DAY 1
     Route: 065
  8. G-CSF [Suspect]
     Indication: PLASMA CELL MYELOMA
     Dosage: ON DAY 2
     Route: 065
  9. MELPHALAN [Suspect]
     Indication: PLASMA CELL MYELOMA
     Route: 065
  10. THALIDOMIDE [Concomitant]
     Indication: PROPHYLAXIS
     Route: 065

REACTIONS (1)
  - Death [Fatal]
